FAERS Safety Report 19787265 (Version 1)
Quarter: 2021Q3

REPORT INFORMATION
  Report Type: Report from Study
  Country: None (occurrence: CO)
  Receive Date: 20210903
  Receipt Date: 20210903
  Transmission Date: 20211014
  Serious: Yes (Hospitalization)
  Sender: FDA-Public Use
  Company Number: CO-ABBVIE-21K-036-4067021-00

PATIENT
  Age: 51 Year
  Sex: Female
  Weight: 75 kg

DRUGS (2)
  1. ZEMPLAR [Suspect]
     Active Substance: PARICALCITOL
     Indication: CHRONIC KIDNEY DISEASE
  2. ZEMPLAR [Suspect]
     Active Substance: PARICALCITOL
     Indication: HYPERPARATHYROIDISM SECONDARY
     Route: 042
     Dates: start: 20190121, end: 20210716

REACTIONS (4)
  - Headache [Recovering/Resolving]
  - Dysarthria [Recovering/Resolving]
  - Balance disorder [Recovering/Resolving]
  - Cerebral artery thrombosis [Recovering/Resolving]

NARRATIVE: CASE EVENT DATE: 2021
